FAERS Safety Report 11871922 (Version 3)
Quarter: 2020Q3

REPORT INFORMATION
  Report Type: Report from Study
  Country: GB (occurrence: GB)
  Receive Date: 20151228
  Receipt Date: 20160531
  Transmission Date: 20201104
  Serious: Yes (Hospitalization)
  Sender: FDA-Public Use
  Company Number: GB-JNJFOC-20151219599

PATIENT
  Age: 57 Year
  Sex: Female
  Weight: 57.5 kg

DRUGS (2)
  1. IBRUTINIB [Suspect]
     Active Substance: IBRUTINIB
     Route: 048
  2. IBRUTINIB [Suspect]
     Active Substance: IBRUTINIB
     Indication: MARGINAL ZONE LYMPHOMA
     Route: 048
     Dates: start: 20141219, end: 20151208

REACTIONS (1)
  - Gastrointestinal lymphoma [Recovering/Resolving]

NARRATIVE: CASE EVENT DATE: 20151212
